FAERS Safety Report 4576414-6 (Version None)
Quarter: 2005Q1

REPORT INFORMATION
  Report Type: 
  Country: None (occurrence: None)
  Receive Date: 20050207
  Receipt Date: 20050124
  Transmission Date: 20050727
  Serious: Yes (Death, Life-Threatening)
  Sender: FDA-Public Use
  Company Number: 2004AP06460

PATIENT
  Age: 71 Year
  Sex: Male
  Weight: 72 kg

DRUGS (3)
  1. DIPRIVAN [Suspect]
     Indication: SEDATION
     Dosage: 2 MG/KG/HR IV
     Route: 042
     Dates: start: 20041224, end: 20041224
  2. DIPRIVAN [Suspect]
     Indication: SEDATION
     Dosage: 4 MG/KG /HR IV
     Route: 042
     Dates: start: 20041224, end: 20041225
  3. XYLOCAINE [Suspect]
     Dosage: 3 DF/HR IV
     Route: 042
     Dates: start: 20041224, end: 20041226

REACTIONS (4)
  - ARRHYTHMIA [None]
  - CARDIAC ARREST [None]
  - CONDITION AGGRAVATED [None]
  - POST PROCEDURAL COMPLICATION [None]
